FAERS Safety Report 11898210 (Version 3)
Quarter: 2016Q1

REPORT INFORMATION
  Report Type: Spontaneous
  Country: US (occurrence: US)
  Receive Date: 20160108
  Receipt Date: 20160318
  Transmission Date: 20160526
  Serious: Yes (Life-Threatening)
  Sender: FDA-Public Use
  Company Number: US-ACTAVIS-2015-29057

PATIENT
  Age: 54 Year
  Sex: Female

DRUGS (4)
  1. CLOPIDOGREL [Suspect]
     Active Substance: CLOPIDOGREL BISULFATE
     Indication: VERTEBRAL ARTERY DISSECTION
     Dosage: 300 MG, UNK
     Route: 065
  2. ASPIRIN. [Concomitant]
     Active Substance: ASPIRIN
     Indication: PRODUCT USED FOR UNKNOWN INDICATION
     Dosage: 325 MG, UNK
     Route: 065
  3. EPTIFIBATIDE. [Concomitant]
     Active Substance: EPTIFIBATIDE
     Indication: PRODUCT USED FOR UNKNOWN INDICATION
     Dosage: 90 ?G/KG
     Route: 040
  4. EPTIFIBATIDE. [Concomitant]
     Active Substance: EPTIFIBATIDE
     Dosage: 1 ?G/KG/MINUTE INFUSION
     Route: 042

REACTIONS (1)
  - Cerebral haemorrhage [Recovered/Resolved]
